FAERS Safety Report 7204048-3 (Version None)
Quarter: 2010Q4

REPORT INFORMATION
  Report Type: 
  Country: None (occurrence: None)
  Receive Date: 20101220
  Receipt Date: 20101208
  Transmission Date: 20110411
  Serious: Yes (Other)
  Sender: FDA-Public Use
  Company Number: GB-1184408

PATIENT
  Age: 53 Year
  Sex: Female

DRUGS (5)
  1. DEXAMETHASONE 0.1% OPHTHALMIC OINTMENT [Suspect]
  2. BUPIVACAINE HCL [Suspect]
     Indication: SPINAL ANAESTHESIA
     Dosage: 2.5 ML
  3. DIAMORPHINE [Suspect]
     Dosage: 300 MCG
  4. ESTRADIOL [Suspect]
  5. BENDROFLUAZIDE (BENDROFLUMETHIAZIDE) [Concomitant]

REACTIONS (1)
  - MYOCLONUS [None]
